FAERS Safety Report 14184885 (Version 3)
Quarter: 2017Q4

REPORT INFORMATION
  Report Type: Spontaneous
  Country: US (occurrence: US)
  Receive Date: 20171114
  Receipt Date: 20171228
  Transmission Date: 20180321
  Serious: Yes (Disabling)
  Sender: FDA-Public Use
  Company Number: PHEH2017US036471

PATIENT
  Sex: Female

DRUGS (1)
  1. GILENYA [Suspect]
     Active Substance: FINGOLIMOD HYDROCHLORIDE
     Indication: RELAPSING-REMITTING MULTIPLE SCLEROSIS
     Dosage: UNK, QD
     Route: 048
     Dates: start: 20170905, end: 20170920

REACTIONS (3)
  - Visual impairment [Unknown]
  - Retinal oedema [Recovering/Resolving]
  - Vision blurred [Unknown]

NARRATIVE: CASE EVENT DATE: 20170920
